FAERS Safety Report 4933045-3 (Version None)
Quarter: 2006Q1

REPORT INFORMATION
  Report Type: 
  Country: None (occurrence: None)
  Receive Date: 20060301
  Receipt Date: 20060301
  Transmission Date: 20060701
  Serious: No
  Sender: FDA-Public Use
  Company Number: None

PATIENT
  Sex: Female

DRUGS (1)
  1. VIGAMOX [Suspect]
     Indication: ULCERATIVE KERATITIS
     Dosage: ONE GTT ON Q 2 HOURS WA  1 GTT QHS

REACTIONS (3)
  - BACTERIAL CULTURE POSITIVE [None]
  - FUNGUS CULTURE POSITIVE [None]
  - PHARMACEUTICAL PRODUCT COMPLAINT [None]
